FAERS Safety Report 4454969-X (Version None)
Quarter: 2004Q3

REPORT INFORMATION
  Report Type: 
  Country: None (occurrence: None)
  Receive Date: 20040824
  Receipt Date: 20040519
  Transmission Date: 20050211
  Serious: No
  Sender: FDA-Public Use
  Company Number: SU-2004-002384

PATIENT
  Age: 63 Year
  Sex: Female

DRUGS (3)
  1. BENICAR [Suspect]
     Indication: HYPERTENSION
     Dosage: 20 MG QD PO
     Route: 048
     Dates: start: 20040505, end: 20040513
  2. ATACAND [Concomitant]
  3. ASPIRIN [Concomitant]

REACTIONS (1)
  - RASH PRURITIC [None]
